FAERS Safety Report 9802595 (Version 4)
Quarter: 2014Q1

REPORT INFORMATION
  Report Type: Spontaneous
  Country: US (occurrence: US)
  Receive Date: 20140108
  Receipt Date: 20140320
  Transmission Date: 20141002
  Serious: Yes (Other)
  Sender: FDA-Public Use
  Company Number: US-BIOGENIDEC-159159

PATIENT
  Age: 32 Year
  Sex: Female

DRUGS (12)
  1. AVONEX [Suspect]
     Indication: MULTIPLE SCLEROSIS
     Route: 030
     Dates: start: 19990318
  2. AVONEX [Suspect]
     Indication: MULTIPLE SCLEROSIS
     Route: 030
     Dates: start: 19990301
  3. AVONEX [Suspect]
     Indication: MULTIPLE SCLEROSIS
     Route: 030
     Dates: end: 2009
  4. AVONEX [Suspect]
     Indication: MULTIPLE SCLEROSIS
     Route: 030
     Dates: start: 20140301
  5. DEPAKOTE [Concomitant]
  6. NEURONTIN [Concomitant]
  7. BACLOFEN [Concomitant]
  8. PROVIGIL [Concomitant]
  9. EFFEXOR [Concomitant]
  10. CLARITIN [Concomitant]
  11. VICODIN [Concomitant]
  12. DONNATOL [Concomitant]

REACTIONS (6)
  - Liposarcoma [Recovered/Resolved]
  - Breast cyst [Unknown]
  - Neoplasm malignant [Unknown]
  - Musculoskeletal disorder [Unknown]
  - Injection site induration [Unknown]
  - Injection site pain [Unknown]
